FAERS Safety Report 8029469-0 (Version None)
Quarter: 2012Q1

REPORT INFORMATION
  Report Type: 
  Country: None (occurrence: None)
  Receive Date: 20120108
  Receipt Date: 20100802
  Transmission Date: 20120608
  Serious: No
  Sender: FDA-Public Use
  Company Number: PHHY2011TW04415

PATIENT
  Sex: Female

DRUGS (2)
  1. TASIGNA [Suspect]
     Dosage: 1 DF, DAILY
     Dates: start: 20100806
  2. TASIGNA [Suspect]
     Indication: CHRONIC MYELOID LEUKAEMIA
     Dosage: 600 MG DAILY
     Route: 048
     Dates: start: 20100731

REACTIONS (9)
  - VAGINAL HAEMORRHAGE [None]
  - ORAL PAIN [None]
  - DRY SKIN [None]
  - RASH [None]
  - CONSTIPATION [None]
  - SKIN DISCOLOURATION [None]
  - DENTAL CARIES [None]
  - PRURITUS [None]
  - OEDEMA [None]
